FAERS Safety Report 23831064 (Version 1)
Quarter: 2024Q2

REPORT INFORMATION
  Report Type: Spontaneous
  Country: KR (occurrence: KR)
  Receive Date: 20240508
  Receipt Date: 20240508
  Transmission Date: 20240716
  Serious: Yes (Other)
  Sender: FDA-Public Use
  Company Number: KR-PFIZER INC-PV202400059481

PATIENT
  Sex: Female

DRUGS (1)
  1. BAZEDOXIFENE ACETATE\ESTROGENS, CONJUGATED [Suspect]
     Active Substance: BAZEDOXIFENE ACETATE\ESTROGENS, CONJUGATED
     Route: 048

REACTIONS (1)
  - Headache [Unknown]
